FAERS Safety Report 5687973-4 (Version None)
Quarter: 2008Q1

REPORT INFORMATION
  Report Type: 
  Country: None (occurrence: None)
  Receive Date: 20080328
  Receipt Date: 20061019
  Transmission Date: 20080703
  Serious: No
  Sender: FDA-Public Use
  Company Number: US-BAYER-US-2005-020176

PATIENT
  Age: 21 Year
  Sex: Female
  Weight: 76 kg

DRUGS (1)
  1. MIRENA [Suspect]
     Indication: CONTRACEPTION
     Route: 015
     Dates: start: 20050101

REACTIONS (10)
  - DIZZINESS [None]
  - FATIGUE [None]
  - GALACTORRHOEA [None]
  - HEADACHE [None]
  - HOT FLUSH [None]
  - MENORRHAGIA [None]
  - MENSTRUATION IRREGULAR [None]
  - METRORRHAGIA [None]
  - MOOD SWINGS [None]
  - NAUSEA [None]
